FAERS Safety Report 12156987 (Version 1)
Quarter: 2016Q1

REPORT INFORMATION
  Report Type: Spontaneous
  Country: US (occurrence: US)
  Receive Date: 20160307
  Receipt Date: 20160307
  Transmission Date: 20160526
  Serious: Yes (Other)
  Sender: FDA-Public Use
  Company Number: US-ASTRAZENECA-2016SE23338

PATIENT
  Age: 61 Year
  Sex: Female
  Weight: 54.4 kg

DRUGS (29)
  1. DICLOFENAC POTASSIUM. [Concomitant]
     Active Substance: DICLOFENAC POTASSIUM
     Indication: ANXIETY
     Route: 048
     Dates: start: 20160217
  2. ASPIRIN. [Concomitant]
     Active Substance: ASPIRIN
     Indication: ILL-DEFINED DISORDER
     Route: 048
  3. XOPONEX [Concomitant]
     Indication: CHRONIC OBSTRUCTIVE PULMONARY DISEASE
     Route: 055
  4. OXYGEN. [Concomitant]
     Active Substance: OXYGEN
     Indication: DYSPNOEA
  5. NEXIUM [Suspect]
     Active Substance: ESOMEPRAZOLE MAGNESIUM
     Indication: GASTROOESOPHAGEAL REFLUX DISEASE
     Route: 048
  6. CLORAZDIPOT [Concomitant]
     Dosage: 7.5 MG AT NIGHT
     Route: 048
     Dates: start: 201602
  7. FOLIC ACID. [Concomitant]
     Active Substance: FOLIC ACID
     Indication: CARDIOVASCULAR INSUFFICIENCY
     Route: 048
  8. ALBUTEROL. [Concomitant]
     Active Substance: ALBUTEROL
     Indication: CHRONIC OBSTRUCTIVE PULMONARY DISEASE
     Route: 048
  9. ALBUTEROL. [Concomitant]
     Active Substance: ALBUTEROL
     Indication: CHRONIC OBSTRUCTIVE PULMONARY DISEASE
     Dosage: NEBULISER LIQUID
     Route: 048
  10. HYDROCODONE [Concomitant]
     Active Substance: HYDROCODONE
     Indication: INTERVERTEBRAL DISC PROTRUSION
     Dosage: AS REQUIRED
     Route: 048
  11. HYDROCODONE [Concomitant]
     Active Substance: HYDROCODONE
     Indication: INTERVERTEBRAL DISC PROTRUSION
     Dosage: 10-325 HALF TABLET
  12. VITAMIN D3 [Concomitant]
     Active Substance: CHOLECALCIFEROL
     Indication: IMMUNE SYSTEM DISORDER
     Route: 048
  13. VITAMIN D3 [Concomitant]
     Active Substance: CHOLECALCIFEROL
     Indication: BONE DISORDER
     Route: 048
  14. LYRICA [Concomitant]
     Active Substance: PREGABALIN
     Indication: NEUROPATHY PERIPHERAL
     Route: 048
  15. HYDROCODONE [Concomitant]
     Active Substance: HYDROCODONE
     Indication: ILL-DEFINED DISORDER
     Dosage: 10-325 HALF TABLET
  16. HYDROCODONE [Concomitant]
     Active Substance: HYDROCODONE
     Indication: ILL-DEFINED DISORDER
     Dosage: AS REQUIRED
     Route: 048
  17. HYDROCODONE [Concomitant]
     Active Substance: HYDROCODONE
     Indication: ARTHRITIS
     Dosage: AS REQUIRED
     Route: 048
  18. HYDROCODONE [Concomitant]
     Active Substance: HYDROCODONE
     Indication: ARTHRITIS
     Dosage: 10-325 HALF TABLET
  19. NEXIUM [Suspect]
     Active Substance: ESOMEPRAZOLE MAGNESIUM
     Indication: GASTROOESOPHAGEAL REFLUX DISEASE
     Route: 048
  20. ROPINIROLE. [Concomitant]
     Active Substance: ROPINIROLE
     Indication: RESTLESS LEGS SYNDROME
     Route: 048
  21. HYDROCODONE [Concomitant]
     Active Substance: HYDROCODONE
     Indication: CARPAL TUNNEL SYNDROME
     Dosage: 10-325 HALF TABLET
  22. MILK THISTLE [Concomitant]
     Active Substance: MILK THISTLE
     Indication: LIVER DISORDER
     Route: 048
  23. VITAMIN A [Concomitant]
     Active Substance: VITAMIN A
     Indication: EYE DISORDER
     Dosage: DAILY
     Route: 048
  24. LEVETIRACETAM. [Concomitant]
     Active Substance: LEVETIRACETAM
     Indication: SEIZURE
     Route: 048
  25. HYDROCODONE [Concomitant]
     Active Substance: HYDROCODONE
     Indication: CARPAL TUNNEL SYNDROME
     Dosage: AS REQUIRED
     Route: 048
  26. TRAMADOL. [Concomitant]
     Active Substance: TRAMADOL
     Indication: PAIN
     Route: 048
     Dates: start: 20160217
  27. SPIRIVA [Concomitant]
     Active Substance: TIOTROPIUM BROMIDE MONOHYDRATE
     Indication: CHRONIC OBSTRUCTIVE PULMONARY DISEASE
     Route: 055
  28. VITAMIN E [Concomitant]
     Active Substance: .ALPHA.-TOCOPHEROL
     Indication: ARTHROPATHY
     Route: 048
  29. FISH OIL [Concomitant]
     Active Substance: FISH OIL
     Indication: ARTHROPATHY
     Dosage: TWO TIMES A DAY
     Route: 048

REACTIONS (15)
  - Neck pain [Unknown]
  - Asthenia [Unknown]
  - Flatulence [Unknown]
  - Abdominal distension [Unknown]
  - Gastrointestinal disorder [Unknown]
  - Off label use [Unknown]
  - Heart rate abnormal [Unknown]
  - Hepatitis C [Unknown]
  - Vomiting [Unknown]
  - Dehydration [Unknown]
  - Anxiety [Unknown]
  - Dyspnoea [Unknown]
  - Cardiac disorder [Unknown]
  - Regurgitation [Unknown]
  - Nausea [Unknown]
